FAERS Safety Report 23722513 (Version 1)
Quarter: 2024Q2

REPORT INFORMATION
  Report Type: Spontaneous
  Country: US (occurrence: US)
  Receive Date: 20240409
  Receipt Date: 20240409
  Transmission Date: 20240716
  Serious: No
  Sender: FDA-Public Use
  Company Number: US-BAYER-2024A049892

PATIENT
  Age: 82 Year
  Sex: Female

DRUGS (2)
  1. CLARITIN [Suspect]
     Active Substance: LORATADINE
     Indication: Sinus disorder
     Route: 048
  2. CLARITIN [Suspect]
     Active Substance: LORATADINE
     Indication: Respiratory disorder

REACTIONS (2)
  - Drug effective for unapproved indication [None]
  - Product use in unapproved indication [None]
